FAERS Safety Report 7310588-9 (Version None)
Quarter: 2011Q1

REPORT INFORMATION
  Report Type: 
  Country: None (occurrence: None)
  Receive Date: 20110224
  Receipt Date: 20100308
  Transmission Date: 20110831
  Serious: No
  Sender: FDA-Public Use
  Company Number: US-BRISTOL-MYERS SQUIBB COMPANY-15009020

PATIENT
  Age: 31 Year
  Sex: Female

DRUGS (2)
  1. JANUMET [Concomitant]
  2. METFORMIN HCL [Suspect]
     Dosage: STARTED ON 15 JAN(YEAR NOT PROVIDED)

REACTIONS (4)
  - HEADACHE [None]
  - DIARRHOEA [None]
  - FATIGUE [None]
  - NAUSEA [None]
